FAERS Safety Report 15723551 (Version 2)
Quarter: 2019Q1

REPORT INFORMATION
  Report Type: Spontaneous
  Country: PL (occurrence: PL)
  Receive Date: 20181214
  Receipt Date: 20190128
  Transmission Date: 20190417
  Serious: Yes (Hospitalization, Other)
  Sender: FDA-Public Use
  Company Number: PL-MYLANLABS-2018M1092449

PATIENT
  Age: 33 Year
  Sex: Female

DRUGS (1)
  1. MESALAZINE [Suspect]
     Active Substance: MESALAMINE
     Indication: CROHN^S DISEASE
     Dosage: UNK UNK, UNKNOWN FREQ.
     Route: 065

REACTIONS (14)
  - Hepatomegaly [Recovered/Resolved]
  - Clostridium difficile infection [Recovering/Resolving]
  - Pregnancy [Unknown]
  - Exposure during pregnancy [Recovered/Resolved]
  - Abdominal pain [Recovered/Resolved]
  - Appendicitis [Recovered/Resolved]
  - Drug ineffective [Unknown]
  - Hypokalaemia [Recovered/Resolved]
  - Cachexia [Recovered/Resolved]
  - Premature delivery [Recovered/Resolved]
  - Ascites [Recovered/Resolved]
  - Crohn^s disease [Recovered/Resolved]
  - Oedema peripheral [Recovered/Resolved]
  - Microcytic anaemia [Recovered/Resolved]
